FAERS Safety Report 7600487-7 (Version None)
Quarter: 2011Q3

REPORT INFORMATION
  Report Type: 
  Country: None (occurrence: None)
  Receive Date: 20110706
  Receipt Date: 20110706
  Transmission Date: 20111222
  Serious: No
  Sender: FDA-Public Use
  Company Number: None

PATIENT
  Sex: Female
  Weight: 65.7716 kg

DRUGS (1)
  1. AMIODARONE HCL [Suspect]
     Indication: VENTRICULAR ARRHYTHMIA
     Dosage: 1/2 OF 200MG DAILY

REACTIONS (7)
  - RESTLESSNESS [None]
  - DISTURBANCE IN ATTENTION [None]
  - ASTHENIA [None]
  - ALOPECIA [None]
  - HYPOAESTHESIA [None]
  - TEMPERATURE INTOLERANCE [None]
  - FATIGUE [None]
